FAERS Safety Report 8802959 (Version 1)
Quarter: 2012Q4

REPORT INFORMATION
  Report Type: 
  Country: US (occurrence: US)
  Receive Date: 20120924
  Receipt Date: 20120924
  Transmission Date: 20130627
  Serious: Yes (Hospitalization, Other)
  Sender: FDA-Public Use
  Company Number: PHHY2012US080782

PATIENT
  Age: 56 Year
  Sex: Female

DRUGS (4)
  1. ANASTROZOLE [Suspect]
     Dosage: UNK
     Dates: start: 20110820
  2. LETROZOLE [Suspect]
  3. CYCLOPHOSPHAMIDE [Concomitant]
     Indication: BREAST CANCER
     Dosage: UNK
     Dates: start: 201103, end: 201105
  4. DOCETAXEL [Concomitant]
     Indication: BREAST CANCER
     Dosage: UNK
     Dates: start: 201103, end: 201105

REACTIONS (13)
  - Suicidal ideation [Recovered/Resolved]
  - Depression [Recovered/Resolved]
  - Anger [Recovered/Resolved]
  - Irritability [Recovered/Resolved]
  - Anxiety [Recovered/Resolved]
  - Feeling guilty [Recovered/Resolved]
  - Asthenia [Recovered/Resolved]
  - Anhedonia [Recovered/Resolved]
  - Disturbance in attention [Recovered/Resolved]
  - Tearfulness [Recovered/Resolved]
  - Depressed mood [Recovered/Resolved]
  - Abnormal behaviour [Recovered/Resolved]
  - Pain [Recovered/Resolved]
